FAERS Safety Report 23037762 (Version 1)
Quarter: 2023Q4

REPORT INFORMATION
  Report Type: Report from Study
  Country: GB (occurrence: GB)
  Receive Date: 20231006
  Receipt Date: 20231006
  Transmission Date: 20240109
  Serious: Yes (Hospitalization, Other)
  Sender: FDA-Public Use
  Company Number: GB-NOVPHSZ-PHHY2018GB007683

PATIENT
  Sex: Male

DRUGS (3)
  1. OMNITROPE [Suspect]
     Active Substance: SOMATROPIN
     Indication: Hydrocephalus
     Dosage: 0.6 MG, QD
     Route: 065
     Dates: start: 20170808
  2. OMNITROPE [Suspect]
     Active Substance: SOMATROPIN
     Indication: Glioma
  3. OMNITROPE [Suspect]
     Active Substance: SOMATROPIN
     Indication: Growth hormone deficiency

REACTIONS (5)
  - General physical health deterioration [Unknown]
  - Brain neoplasm [Unknown]
  - Memory impairment [Unknown]
  - Product storage error [Unknown]
  - Product dose omission issue [Unknown]
